FAERS Safety Report 19871560 (Version 1)
Quarter: 2021Q3

REPORT INFORMATION
  Report Type: Spontaneous
  Country: US (occurrence: US)
  Receive Date: 20210923
  Receipt Date: 20210923
  Transmission Date: 20211014
  Serious: No
  Sender: FDA-Public Use
  Company Number: US-SA-2021SA311790

PATIENT
  Sex: Male

DRUGS (8)
  1. RANITIDINE. [Concomitant]
     Active Substance: RANITIDINE
  2. AUBAGIO [Suspect]
     Active Substance: TERIFLUNOMIDE
     Indication: MULTIPLE SCLEROSIS
     Dosage: 1 DF, QD
     Route: 048
     Dates: start: 20190802
  3. KEPPRA [Concomitant]
     Active Substance: LEVETIRACETAM
  4. METOPROLOL. [Concomitant]
     Active Substance: METOPROLOL
  5. AMBIEN [Concomitant]
     Active Substance: ZOLPIDEM TARTRATE
  6. LITHIUM. [Concomitant]
     Active Substance: LITHIUM
  7. SAPHRIS [Concomitant]
     Active Substance: ASENAPINE MALEATE
  8. AMITRIPTYLIN [Concomitant]
     Active Substance: AMITRIPTYLINE

REACTIONS (1)
  - Product dose omission issue [Unknown]
